FAERS Safety Report 7837955-9 (Version None)
Quarter: 2011Q4

REPORT INFORMATION
  Report Type: 
  Country: None (occurrence: None)
  Receive Date: 20111024
  Receipt Date: 20110518
  Transmission Date: 20120403
  Serious: No
  Sender: FDA-Public Use
  Company Number: US-ABBOTT-11P-163-0727037-00

PATIENT
  Sex: Female

DRUGS (3)
  1. LUPRON DEPOT [Suspect]
     Indication: UTERINE LEIOMYOMA
     Route: 030
     Dates: start: 20110309
  2. IBUPROFEN [Concomitant]
     Indication: ABDOMINAL PAIN
     Route: 048
  3. NORETHINDRONE [Concomitant]
     Indication: CONTRACEPTION

REACTIONS (2)
  - MENORRHAGIA [None]
  - ABDOMINAL PAIN [None]
